FAERS Safety Report 8109577-6 (Version None)
Quarter: 2012Q1

REPORT INFORMATION
  Report Type: 
  Country: None (occurrence: None)
  Receive Date: 20120202
  Receipt Date: 20120125
  Transmission Date: 20120608
  Serious: Yes (Other)
  Sender: FDA-Public Use
  Company Number: GR-PFIZER INC-2012021673

PATIENT
  Age: 42 Year
  Sex: Male

DRUGS (1)
  1. METHYLPREDNISOLONE SODIUM SUCCINATE [Suspect]
     Indication: ENDOCRINE OPHTHALMOPATHY
     Dosage: 1 G, UNK
     Route: 042

REACTIONS (2)
  - THYROTOXIC PERIODIC PARALYSIS [None]
  - HYPOKALAEMIA [None]
